FAERS Safety Report 10363024 (Version 1)
Quarter: 2014Q3

REPORT INFORMATION
  Report Type: Spontaneous
  Country: IT (occurrence: IT)
  Receive Date: 20140805
  Receipt Date: 20140805
  Transmission Date: 20150326
  Serious: Yes (Hospitalization, Other)
  Sender: FDA-Public Use
  Company Number: IT-TEVA-498009ISR

PATIENT
  Age: 89 Year
  Sex: Female

DRUGS (7)
  1. VALPRESSION - 80 MG CAPSULE - A. MENARINI INDUSTRIE FARMACEUTICHE [Suspect]
     Active Substance: VALSARTAN
     Indication: PRODUCT USED FOR UNKNOWN INDICATION
     Dates: start: 20140101, end: 20140617
  2. LASITONE - 25 MG + 37 MG CAPSULE RIGIDE - SANOFI-AVENTIS S.P.A. [Suspect]
     Active Substance: FUROSEMIDE\SPIRONOLACTONE
     Indication: PRODUCT USED FOR UNKNOWN INDICATION
     Dates: start: 20140101, end: 20140617
  3. COUMADIN [Concomitant]
     Active Substance: WARFARIN SODIUM
     Indication: PRODUCT USED FOR UNKNOWN INDICATION
  4. FUROSEMIDE. [Suspect]
     Active Substance: FUROSEMIDE
     Indication: PRODUCT USED FOR UNKNOWN INDICATION
     Dates: start: 20140101, end: 20140617
  5. TILDIEM - 60 MG COMPRESSE A RILASCIO MODIFICATO [Concomitant]
     Indication: PRODUCT USED FOR UNKNOWN INDICATION
  6. SERETIDE DISKUS - 50/500 POLVERE PER INALAZIONE [Concomitant]
     Indication: PRODUCT USED FOR UNKNOWN INDICATION
     Route: 055
  7. SPIRIVA [Concomitant]
     Active Substance: TIOTROPIUM BROMIDE MONOHYDRATE
     Indication: PRODUCT USED FOR UNKNOWN INDICATION

REACTIONS (3)
  - Hyperkalaemia [Recovering/Resolving]
  - Renal failure acute [Recovering/Resolving]
  - Renal failure acute [None]

NARRATIVE: CASE EVENT DATE: 20140617
